FAERS Safety Report 5692402-0 (Version None)
Quarter: 2008Q2

REPORT INFORMATION
  Report Type: 
  Country: None (occurrence: None)
  Receive Date: 20080328
  Receipt Date: 20080109
  Transmission Date: 20081010
  Serious: Yes (Life-Threatening, Hospitalization)
  Sender: FDA-Public Use
  Company Number: US-WYE-H02123208

PATIENT
  Age: 78 Year
  Sex: Male
  Weight: 88.08 kg

DRUGS (5)
  1. TORISEL [Suspect]
     Indication: RENAL CELL CARCINOMA
     Dosage: 25 MG 1X PER 1 WK, INTRAVENOUS
     Route: 042
     Dates: start: 20070730, end: 20071109
  2. COUMADIN [Concomitant]
  3. LANOXIN [Concomitant]
  4. LOPRESSOR [Concomitant]
  5. CARDIZEM [Concomitant]

REACTIONS (1)
  - RENAL FAILURE ACUTE [None]
